FAERS Safety Report 7935481-X (Version None)
Quarter: 2011Q4

REPORT INFORMATION
  Report Type: 
  Country: None (occurrence: None)
  Receive Date: 20111123
  Receipt Date: 20111115
  Transmission Date: 20120403
  Serious: Yes (Hospitalization)
  Sender: FDA-Public Use
  Company Number: US-BIOGENIDEC-2010BI037902

PATIENT
  Age: 37 Year
  Sex: Female

DRUGS (4)
  1. TYSABRI [Suspect]
     Indication: MULTIPLE SCLEROSIS
     Route: 042
     Dates: start: 20100105
  2. RITALIN [Concomitant]
     Indication: FATIGUE
  3. AMPYRA [Concomitant]
     Indication: BALANCE DISORDER
     Dates: start: 20100601, end: 20100701
  4. FOCALIN [Concomitant]
     Indication: FATIGUE

REACTIONS (9)
  - CREPITATIONS [None]
  - PAIN IN EXTREMITY [None]
  - OEDEMA PERIPHERAL [None]
  - BALANCE DISORDER [None]
  - MUSCULAR WEAKNESS [None]
  - FATIGUE [None]
  - FIBULA FRACTURE [None]
  - GAIT DISTURBANCE [None]
  - TIBIA FRACTURE [None]
